FAERS Safety Report 6261453-X (Version None)
Quarter: 2009Q3

REPORT INFORMATION
  Report Type: 
  Country: None (occurrence: None)
  Receive Date: 20090701
  Receipt Date: 20080714
  Transmission Date: 20100115
  Serious: Yes (Life-Threatening, Hospitalization, Other)
  Sender: FDA-Public Use
  Company Number: 162669USA

PATIENT
  Age: 50 Year
  Sex: Female
  Weight: 58.9676 kg

DRUGS (7)
  1. FLURBIPROFEN [Suspect]
     Indication: INTERVERTEBRAL DISC DISORDER
     Dosage: 200 MG (100 MG, 2 IN 1 D), ORAL
     Route: 048
     Dates: start: 20070917, end: 20070928
  2. FLURBIPROFEN [Suspect]
     Indication: PAIN
     Dosage: 200 MG (100 MG, 2 IN 1 D), ORAL
     Route: 048
     Dates: start: 20070917, end: 20070928
  3. FLURBIPROFEN [Suspect]
     Indication: SPINAL OSTEOARTHRITIS
     Dosage: 200 MG (100 MG, 2 IN 1 D), ORAL
     Route: 048
     Dates: start: 20070917, end: 20070928
  4. LOVASTATIN [Concomitant]
  5. TRIAMTERENE [Concomitant]
  6. PANADEINE CO [Concomitant]
  7. SOMA COMPOUND [Concomitant]

REACTIONS (13)
  - BLOOD PRESSURE INCREASED [None]
  - BREATHING-RELATED SLEEP DISORDER [None]
  - DYSPNOEA [None]
  - FATIGUE [None]
  - HEART RATE INCREASED [None]
  - HYPERSENSITIVITY [None]
  - MENTAL DISORDER [None]
  - MOOD SWINGS [None]
  - RASH [None]
  - SERUM SICKNESS [None]
  - SNORING [None]
  - URTICARIA [None]
  - WHITE BLOOD CELL COUNT INCREASED [None]
